FAERS Safety Report 6453271-4 (Version None)
Quarter: 2009Q4

REPORT INFORMATION
  Report Type: 
  Country: None (occurrence: None)
  Receive Date: 20091123
  Receipt Date: 20091123
  Transmission Date: 20100525
  Serious: Yes (Other)
  Sender: FDA-Public Use
  Company Number: None

PATIENT
  Age: 44 Year
  Weight: 95.2554 kg

DRUGS (1)
  1. PROPECIA [Suspect]
     Indication: ALOPECIA
     Dosage: 1 TABLET DAILY PO
     Route: 048
     Dates: start: 20091119, end: 20091120

REACTIONS (4)
  - EYE SWELLING [None]
  - LIP SWELLING [None]
  - MASTICATION DISORDER [None]
  - SWELLING FACE [None]
